FAERS Safety Report 7412005-7 (Version None)
Quarter: 2011Q2

REPORT INFORMATION
  Report Type: 
  Country: None (occurrence: None)
  Receive Date: 20110405
  Receipt Date: 20110317
  Transmission Date: 20111010
  Serious: Yes (Death)
  Sender: FDA-Public Use
  Company Number: 2011P1005251

PATIENT
  Age: 63 Year
  Sex: Female

DRUGS (7)
  1. ETHANOL (NO PREF. NAME) [Suspect]
     Dosage: ; PO
     Route: 048
  2. ACETAMINOPHEN/DIPHENHYDRAMINE (NO PREF. NAME) [Suspect]
     Dosage: ; PO
     Route: 048
  3. ANTACID (NO PREF. NAME) [Suspect]
     Dosage: ; PO
     Route: 048
  4. CIMETIDINE [Suspect]
     Dosage: ; PO
     Route: 048
  5. RODENTICIDE (ANTICOAGULANT) (NO PREF. NAME) [Suspect]
     Dosage: ; PO
     Route: 048
  6. ISOPROPANOL (NO PREF. NAME) [Suspect]
     Dosage: ; PO
     Route: 048
  7. POTASSIUM CITRATE (NO PREF. NAME) [Suspect]
     Dosage: ; PO
     Route: 048

REACTIONS (1)
  - COMPLETED SUICIDE [None]
